FAERS Safety Report 21694641 (Version 2)
Quarter: 2022Q4

REPORT INFORMATION
  Report Type: Report from Study
  Country: US (occurrence: US)
  Receive Date: 20221207
  Receipt Date: 20221213
  Transmission Date: 20230112
  Serious: Yes (Life-Threatening, Other)
  Sender: FDA-Public Use
  Company Number: US-002147023-NVSC2022US283026

PATIENT
  Sex: Female

DRUGS (1)
  1. XIIDRA [Suspect]
     Active Substance: LIFITEGRAST
     Indication: Dry eye
     Dosage: 4 DRP, BID
     Route: 047
     Dates: start: 202207

REACTIONS (4)
  - Suicidal ideation [Unknown]
  - Diabetes mellitus [Unknown]
  - Malaise [Unknown]
  - Thyroid disorder [Unknown]
